FAERS Safety Report 11497149 (Version 1)
Quarter: 2015Q3

REPORT INFORMATION
  Report Type: Report from Study
  Country: CA (occurrence: CA)
  Receive Date: 20150911
  Receipt Date: 20150911
  Transmission Date: 20151125
  Serious: Yes (Other)
  Sender: FDA-Public Use
  Company Number: CA-JNJFOC-20150906586

PATIENT
  Age: 54 Year
  Sex: Female
  Weight: 85.9 kg

DRUGS (4)
  1. REMICADE [Suspect]
     Active Substance: INFLIXIMAB
     Indication: HIDRADENITIS
     Route: 042
     Dates: start: 20150812
  2. COVERSYL [Concomitant]
     Active Substance: PERINDOPRIL
     Route: 065
  3. REMICADE [Suspect]
     Active Substance: INFLIXIMAB
     Indication: HIDRADENITIS
     Route: 042
     Dates: start: 20121108
  4. NASOCORT [Concomitant]
     Active Substance: BUDESONIDE
     Route: 065

REACTIONS (10)
  - Diarrhoea [Not Recovered/Not Resolved]
  - Pain [Not Recovered/Not Resolved]
  - Infusion related reaction [Not Recovered/Not Resolved]
  - Vomiting [Not Recovered/Not Resolved]
  - Pallor [Not Recovered/Not Resolved]
  - Blood pressure increased [Not Recovered/Not Resolved]
  - Emotional distress [Not Recovered/Not Resolved]
  - Nausea [Recovered/Resolved]
  - Product use issue [Unknown]
  - Abdominal pain [Not Recovered/Not Resolved]

NARRATIVE: CASE EVENT DATE: 20121108
